FAERS Safety Report 18038853 (Version 1)
Quarter: 2020Q3

REPORT INFORMATION
  Report Type: Report from Study
  Country: US (occurrence: US)
  Receive Date: 20200717
  Receipt Date: 20200717
  Transmission Date: 20201103
  Serious: Yes (Congenital Anomaly, Other)
  Sender: FDA-Public Use
  Company Number: US-UCBSA-2020027970

PATIENT

DRUGS (2)
  1. LAMOTRIGINE. [Concomitant]
     Active Substance: LAMOTRIGINE
     Indication: SEIZURE
     Dosage: MEDIAN DOSE OF 400 MILLIGRAM
     Route: 064
  2. LEVETIRACETAM. [Suspect]
     Active Substance: LEVETIRACETAM
     Indication: SEIZURE
     Dosage: MEDIAN DOSE OF 1500 MILLIGRAM
     Route: 064

REACTIONS (4)
  - Maternal exposure during pregnancy [Unknown]
  - Arnold-Chiari malformation [Unknown]
  - Meningomyelocele [Unknown]
  - Microcephaly [Unknown]
